FAERS Safety Report 6814539-2 (Version None)
Quarter: 2010Q3

REPORT INFORMATION
  Report Type: 
  Country: None (occurrence: None)
  Receive Date: 20100702
  Receipt Date: 20100625
  Transmission Date: 20110219
  Serious: Yes (Hospitalization)
  Sender: FDA-Public Use
  Company Number: FR-JNJFOC-20090707957

PATIENT
  Sex: Female

DRUGS (9)
  1. CONTRAMAL [Suspect]
     Indication: BACK PAIN
     Dosage: 1 PER DAY
     Route: 048
     Dates: start: 20090619, end: 20090620
  2. RISPERDAL [Suspect]
     Indication: AGITATION
     Dosage: TWICE A DAY
     Route: 048
     Dates: start: 20090618, end: 20090620
  3. DEPAKOTE [Suspect]
     Indication: BIPOLAR I DISORDER
     Dosage: TWICE A DAY
     Route: 048
  4. LOVENOX [Suspect]
     Indication: THROMBOSIS PROPHYLAXIS
     Dosage: 1 PER DAY
     Route: 058
  5. IMOVANE [Concomitant]
     Dosage: 1 PER DAY
     Route: 065
  6. LYSANXIA [Concomitant]
     Dosage: 10 DROPS IN THE EVENING
     Route: 048
  7. KARDEGIC [Concomitant]
     Dosage: DAILY
     Route: 065
  8. FORLAX [Concomitant]
     Dosage: 1 SACHET DAILY
     Route: 065
  9. DOLIPRANE [Concomitant]
     Dosage: ONCE PER DAY
     Route: 065

REACTIONS (1)
  - CYTOLYTIC HEPATITIS [None]
